FAERS Safety Report 10559736 (Version 7)
Quarter: 2015Q2

REPORT INFORMATION
  Report Type: Spontaneous
  Country: US (occurrence: US)
  Receive Date: 20141103
  Receipt Date: 20150519
  Transmission Date: 20150821
  Serious: Yes (Hospitalization)
  Sender: FDA-Public Use
  Company Number: US-PFIZER INC-2014300793

PATIENT
  Age: 68 Year
  Sex: Male
  Weight: 88 kg

DRUGS (9)
  1. ZOLOFT [Concomitant]
     Active Substance: SERTRALINE HYDROCHLORIDE
     Dosage: UNK
  2. NIFEDIPINE. [Concomitant]
     Active Substance: NIFEDIPINE
     Dosage: UNK
  3. SUTENT [Suspect]
     Active Substance: SUNITINIB MALATE
     Indication: RENAL CANCER METASTATIC
     Dosage: 50 MG, CYCLIC (DAILY, 2 WEEKS ON, 1 WEEK OFF)
     Dates: start: 20141110
  4. ANTI-NAUSEA [Concomitant]
     Active Substance: UNSPECIFIED INGREDIENT
     Dosage: UNK
  5. OXYCODONE [Concomitant]
     Active Substance: OXYCODONE
     Dosage: UNK
  6. LASIX [Concomitant]
     Active Substance: FUROSEMIDE
     Dosage: 40 MG, UNK
  7. CRANBERRY FRUIT CAPSULE [Concomitant]
     Dosage: UNK
     Route: 048
  8. COREG [Concomitant]
     Active Substance: CARVEDILOL
     Dosage: UNK
  9. ZOFRAN [Concomitant]
     Active Substance: ONDANSETRON HYDROCHLORIDE
     Dosage: 4 MG, AS NEEDED

REACTIONS (15)
  - Nausea [Recovered/Resolved]
  - Dyspnoea [Unknown]
  - Thyroid disorder [Unknown]
  - Vomiting [Unknown]
  - Arthropathy [Unknown]
  - Fatigue [Recovering/Resolving]
  - Dizziness [Unknown]
  - Malaise [Recovering/Resolving]
  - Diarrhoea [Unknown]
  - Joint swelling [Unknown]
  - Decreased appetite [Recovered/Resolved]
  - Heart rate increased [Unknown]
  - Cough [Unknown]
  - Peripheral swelling [Unknown]
  - Weight increased [Unknown]

NARRATIVE: CASE EVENT DATE: 2014
